FAERS Safety Report 20878017 (Version 1)
Quarter: 2022Q2

REPORT INFORMATION
  Report Type: Spontaneous
  Country: GB (occurrence: GB)
  Receive Date: 20220526
  Receipt Date: 20220526
  Transmission Date: 20220720
  Serious: Yes (Hospitalization, Disabling, Other)
  Sender: FDA-Public Use
  Company Number: None

PATIENT
  Age: 33 Year
  Sex: Female

DRUGS (10)
  1. LINEZOLID [Suspect]
     Active Substance: LINEZOLID
     Indication: Bone tuberculosis
     Dosage: 600 MG, 1X/DAY
     Route: 048
     Dates: start: 20200426, end: 20210510
  2. MOXIFLOXACIN [Concomitant]
     Active Substance: MOXIFLOXACIN
     Indication: Bone tuberculosis
     Dosage: UNK
     Dates: start: 20200426, end: 202102
  3. CLOFAZIMINE [Concomitant]
     Active Substance: CLOFAZIMINE
     Indication: Bone tuberculosis
     Route: 048
     Dates: start: 20200426
  4. TERIZIDONE [Concomitant]
     Active Substance: TERIZIDONE
     Indication: Bone tuberculosis
     Dosage: UNK
     Dates: start: 20200426, end: 202008
  5. PYRIDOXINE [Concomitant]
     Active Substance: PYRIDOXINE
     Indication: Bone tuberculosis
     Dosage: UNK
     Dates: start: 20200426
  6. BEDAQUILINE [Concomitant]
     Active Substance: BEDAQUILINE
     Indication: Bone tuberculosis
     Dosage: UNK
     Dates: start: 20200426
  7. CYCLOSERINE [Concomitant]
     Active Substance: CYCLOSERINE
     Indication: Bone tuberculosis
     Dosage: 500 MG, 2X/DAY
     Route: 048
     Dates: start: 202008
  8. LEVOFLOXACIN [Concomitant]
     Active Substance: LEVOFLOXACIN
     Indication: Bone tuberculosis
     Dosage: 500 MG, 2X/DAY
     Route: 048
     Dates: start: 20210226
  9. NIACINAMIDE\PYRIDOXINE HYDROCHLORIDE\RIBOFLAVIN\THIAMINE HYDROCHLORIDE [Concomitant]
     Active Substance: NIACINAMIDE\PYRIDOXINE HYDROCHLORIDE\RIBOFLAVIN\THIAMINE HYDROCHLORIDE
     Dosage: UNK, 3X/DAY
     Route: 048
  10. GABAPENTIN [Concomitant]
     Active Substance: GABAPENTIN
     Route: 048

REACTIONS (6)
  - Headache [Unknown]
  - Photophobia [Unknown]
  - Papilloedema [Not Recovered/Not Resolved]
  - Optic neuritis [Unknown]
  - Iron deficiency anaemia [Unknown]
  - Idiopathic intracranial hypertension [Unknown]

NARRATIVE: CASE EVENT DATE: 20210101
